FAERS Safety Report 4654002-0 (Version None)
Quarter: 2005Q2

REPORT INFORMATION
  Report Type: 
  Country: None (occurrence: None)
  Receive Date: 20050504
  Receipt Date: 20050426
  Transmission Date: 20051028
  Serious: Yes (Hospitalization)
  Sender: FDA-Public Use
  Company Number: 028-20785-04040712

PATIENT
  Age: 69 Year
  Sex: Male

DRUGS (8)
  1. THALOMID [Suspect]
     Indication: MULTIPLE MYELOMA
     Dosage: 200 MG, QHS, ORAL
     Route: 048
     Dates: start: 20020501
  2. PREDNISONE [Concomitant]
  3. DILAUDID [Concomitant]
  4. AREDIA [Concomitant]
  5. QUININE SULFATE (QUININE SULFATE) [Concomitant]
  6. LOSEC (OMEPRAZOLE) [Concomitant]
  7. IMMOVANE (ZOPICLONE) [Concomitant]
  8. EPREX [Concomitant]

REACTIONS (10)
  - ASTHENIA [None]
  - CHOLECYSTITIS ACUTE [None]
  - MUSCLE SPASMS [None]
  - NEOPLASM PROGRESSION [None]
  - NIGHT SWEATS [None]
  - OCULAR NEOPLASM [None]
  - PLASMACYTOMA [None]
  - SPINAL DISORDER [None]
  - VENA CAVA THROMBOSIS [None]
  - VISUAL ACUITY REDUCED [None]
